FAERS Safety Report 20958776 (Version 1)
Quarter: 2022Q2

REPORT INFORMATION
  Report Type: Report from Study
  Country: US (occurrence: US)
  Receive Date: 20220614
  Receipt Date: 20220614
  Transmission Date: 20220720
  Serious: Yes (Death, Life-Threatening, Hospitalization, Other)
  Sender: FDA-Public Use
  Company Number: US-AMGEN-USACT2022093739

PATIENT
  Age: 70 Year
  Sex: Female
  Weight: 128.3 kg

DRUGS (8)
  1. BLINATUMOMAB [Suspect]
     Active Substance: BLINATUMOMAB
     Indication: B precursor type acute leukaemia
     Dosage: TOTAL DOSE: 6 MCG
     Route: 065
     Dates: start: 20220430, end: 20220501
  2. CYTARABINE [Suspect]
     Active Substance: CYTARABINE
     Indication: B precursor type acute leukaemia
     Dosage: TOTAL DOSE: 70MG
     Route: 065
     Dates: start: 20220411, end: 20220411
  3. SPRYCEL [Suspect]
     Active Substance: DASATINIB
     Indication: B precursor type acute leukaemia
     Dosage: TOTAL DOSE: 140 MG
     Route: 065
     Dates: start: 20220409
  4. DEXAMETHASONE [Suspect]
     Active Substance: DEXAMETHASONE
     Indication: B precursor type acute leukaemia
     Dosage: TOTAL DOSE : 68 MG (20 MG AS PREMED AND 48 MG IN DIVIDED DOSE FOR CRS)
     Route: 065
     Dates: start: 20220430
  5. DEXAMETHASONE [Suspect]
     Active Substance: DEXAMETHASONE
     Indication: Cytokine release syndrome
  6. PREDNISONE [Suspect]
     Active Substance: PREDNISONE
     Indication: B precursor type acute leukaemia
     Dosage: TOTAL DOSE: 140 MG (ONE DOSE ON 30/APR/2022 GIVEN IN AM PRIOR TO ARM C BLIN START)
     Route: 065
     Dates: start: 20220411, end: 20220430
  7. TOCILIZUMAB [Suspect]
     Active Substance: TOCILIZUMAB
     Indication: Product used for unknown indication
     Dosage: UNK
     Route: 065
  8. TOCILIZUMAB [Suspect]
     Active Substance: TOCILIZUMAB
     Indication: Cytokine release syndrome

REACTIONS (6)
  - Haemophagocytic lymphohistiocytosis [Fatal]
  - Haemophagocytic lymphohistiocytosis [Fatal]
  - Cytokine release syndrome [Recovered/Resolved]
  - Acute kidney injury [Recovering/Resolving]
  - Urine output decreased [Recovered/Resolved]
  - Sepsis [Recovering/Resolving]

NARRATIVE: CASE EVENT DATE: 20220501
